FAERS Safety Report 16614616 (Version 1)
Quarter: 2019Q3

REPORT INFORMATION
  Report Type: Spontaneous
  Country: FR (occurrence: FR)
  Receive Date: 20190723
  Receipt Date: 20190723
  Transmission Date: 20191004
  Serious: Yes (Death, Hospitalization, Other)
  Sender: FDA-Public Use
  Company Number: FR-AUROBINDO-AUR-APL-2019-042696

PATIENT

DRUGS (7)
  1. AMLOR [Suspect]
     Active Substance: AMLODIPINE BESYLATE
     Indication: SEPTIC SHOCK
     Dosage: 5 MILLIGRAM
     Route: 048
     Dates: start: 20180908, end: 20181002
  2. VYXEOS [Suspect]
     Active Substance: CYTARABINE\DAUNORUBICIN
     Indication: ACUTE MYELOID LEUKAEMIA
     Dosage: 60 MILLIGRAM/SQ. METER
     Route: 042
     Dates: start: 20180706, end: 20180710
  3. MERONEM [Suspect]
     Active Substance: MEROPENEM
     Indication: INFECTION
     Dosage: 3 MILLIGRAM
     Route: 042
     Dates: start: 20180908, end: 20180930
  4. ESIDREX [Suspect]
     Active Substance: HYDROCHLOROTHIAZIDE
     Indication: BLOOD PRESSURE MANAGEMENT
     Dosage: 0.5 MILLIGRAM
     Route: 048
     Dates: start: 20180908, end: 20181002
  5. PANTOPRAZOLE [Suspect]
     Active Substance: PANTOPRAZOLE
     Indication: PRODUCT USED FOR UNKNOWN INDICATION
     Dosage: 20 MILLIGRAM
     Route: 048
     Dates: start: 20180908, end: 20181101
  6. PERINDOPRIL [Suspect]
     Active Substance: PERINDOPRIL
     Indication: SEPTIC SHOCK
     Dosage: 4 MILLIGRAM
     Route: 048
     Dates: start: 20180908, end: 20181002
  7. ATENOLOL. [Suspect]
     Active Substance: ATENOLOL
     Indication: SEPTIC SHOCK
     Dosage: 60 MILLIGRAM
     Route: 065
     Dates: start: 20180908, end: 20181002

REACTIONS (5)
  - Dermo-hypodermitis [Recovered/Resolved]
  - Pseudomonas infection [Fatal]
  - Septic shock [Fatal]
  - Stenotrophomonas infection [Fatal]
  - Erysipelas [Recovered/Resolved]

NARRATIVE: CASE EVENT DATE: 20180930
